FAERS Safety Report 20365911 (Version 1)
Quarter: 2022Q1

REPORT INFORMATION
  Report Type: Other
  Country: US (occurrence: US)
  Receive Date: 20220123
  Receipt Date: 20220123
  Transmission Date: 20220424
  Serious: No
  Sender: FDA-Public Use
  Company Number: US-ACORDA-ACO_167859_2021

PATIENT

DRUGS (1)
  1. AMPYRA [Suspect]
     Active Substance: DALFAMPRIDINE
     Indication: Product used for unknown indication
     Dosage: UNK
     Route: 065

REACTIONS (16)
  - Muscular weakness [Unknown]
  - Depression [Unknown]
  - Anxiety [Unknown]
  - Irritability [Unknown]
  - Limb discomfort [Unknown]
  - Hypoaesthesia [Unknown]
  - Musculoskeletal stiffness [Unknown]
  - Fall [Unknown]
  - Pollakiuria [Unknown]
  - Bladder spasm [Unknown]
  - Condition aggravated [Unknown]
  - Fatigue [Unknown]
  - Gait disturbance [Unknown]
  - Balance disorder [Unknown]
  - Constipation [Unknown]
  - Back pain [Unknown]
